FAERS Safety Report 9348060 (Version 1)
Quarter: 2013Q2

REPORT INFORMATION
  Report Type: Report from Study
  Country: CA (occurrence: CA)
  Receive Date: 20130614
  Receipt Date: 20130614
  Transmission Date: 20140414
  Serious: Yes (Other)
  Sender: FDA-Public Use
  Company Number: CA-JNJFOC-20130511786

PATIENT
  Age: 20 Year
  Sex: Female
  Weight: 57.15 kg

DRUGS (3)
  1. REMICADE [Suspect]
     Indication: ANKYLOSING SPONDYLITIS
     Route: 042
     Dates: start: 20130522
  2. REMICADE [Suspect]
     Indication: ANKYLOSING SPONDYLITIS
     Route: 042
     Dates: start: 20130507, end: 20130507
  3. BENADRYL [Concomitant]
     Indication: PREMEDICATION
     Route: 065

REACTIONS (4)
  - Arthralgia [Unknown]
  - Adverse event [Unknown]
  - Pharyngeal oedema [Unknown]
  - Dyspnoea [Unknown]
